FAERS Safety Report 16725483 (Version 1)
Quarter: 2019Q4

REPORT INFORMATION
  Report Type: Spontaneous
  Country: US (occurrence: US)
  Receive Date: 20190820
  Receipt Date: 20190820
  Transmission Date: 20200122
  Serious: Yes (Hospitalization)
  Sender: FDA-Public Use
  Company Number: None

PATIENT
  Age: 64 Year
  Sex: Female

DRUGS (6)
  1. AFINITOR [Suspect]
     Active Substance: EVEROLIMUS
     Indication: NEOPLASM MALIGNANT
     Route: 048
     Dates: start: 20181130
  2. ELIQUIS [Concomitant]
     Active Substance: APIXABAN
     Dates: start: 20190819
  3. ANASTROZOLE. [Concomitant]
     Active Substance: ANASTROZOLE
     Dates: start: 20180411
  4. XARELTO [Concomitant]
     Active Substance: RIVAROXABAN
     Dates: start: 20190813
  5. AMLODIPINE [Concomitant]
     Active Substance: AMLODIPINE BESYLATE
     Dates: start: 20180411
  6. POTASSIUM [Concomitant]
     Active Substance: POTASSIUM
     Dates: start: 20180411

REACTIONS (3)
  - Stomatitis [None]
  - Thrombosis [None]
  - Fatigue [None]
